FAERS Safety Report 8172741-4 (Version None)
Quarter: 2012Q1

REPORT INFORMATION
  Report Type: 
  Country: None (occurrence: None)
  Receive Date: 20120229
  Receipt Date: 20120217
  Transmission Date: 20120608
  Serious: Yes (Death)
  Sender: FDA-Public Use
  Company Number: JP-AMGEN-JPNCT2012011133

PATIENT
  Age: 69 Year
  Sex: Male

DRUGS (6)
  1. OXALIPLATIN [Suspect]
     Indication: COLORECTAL CANCER
     Route: 041
     Dates: start: 20110616
  2. OXYCONTIN [Concomitant]
     Route: 048
  3. LEVOLEUCOVORIN CALCIUM [Suspect]
     Indication: COLORECTAL CANCER
     Route: 041
     Dates: start: 20110616
  4. FLUOROURACIL [Suspect]
     Indication: COLORECTAL CANCER
     Route: 040
     Dates: start: 20110616
  5. FLUOROURACIL [Suspect]
     Route: 041
     Dates: start: 20110616
  6. PANITUMUMAB [Suspect]
     Indication: COLORECTAL CANCER
     Dosage: UNK, Q2WK
     Route: 041
     Dates: start: 20110616

REACTIONS (1)
  - INTERSTITIAL LUNG DISEASE [None]
